FAERS Safety Report 8458580-5 (Version None)
Quarter: 2012Q2

REPORT INFORMATION
  Report Type: 
  Country: None (occurrence: None)
  Receive Date: 20120622
  Receipt Date: 20120612
  Transmission Date: 20120825
  Serious: Yes (Other)
  Sender: FDA-Public Use
  Company Number: US-JNJFOC-20120608016

PATIENT
  Age: 33 Year
  Sex: Male

DRUGS (3)
  1. KETOCONAZOLE [Suspect]
     Indication: PRODUCT USED FOR UNKNOWN INDICATION
     Dosage: ADMINISTERED IN THE EVENING OF DAY -1 AND DAY 2-3
     Route: 065
  2. BOSUTINIB [Interacting]
     Indication: PRODUCT USED FOR UNKNOWN INDICATION
     Dosage: ON DAY 1 OF EACH PERIOD
     Route: 065
  3. PLACEBO [Suspect]
     Indication: PRODUCT USED FOR UNKNOWN INDICATION
     Dosage: ON DAY 1 OF EACH PERIOD
     Route: 065

REACTIONS (2)
  - DRUG INTERACTION [None]
  - NEUTROPHIL COUNT DECREASED [None]
